FAERS Safety Report 6866540-0 (Version None)
Quarter: 2010Q3

REPORT INFORMATION
  Report Type: 
  Country: None (occurrence: None)
  Receive Date: 20100722
  Receipt Date: 20100716
  Transmission Date: 20110219
  Serious: Yes (Death, Hospitalization)
  Sender: FDA-Public Use
  Company Number: AU-SANOFI-AVENTIS-2010SA036217

PATIENT
  Age: 81 Year
  Sex: Male

DRUGS (7)
  1. TAXOTERE [Suspect]
     Indication: PROSTATE CANCER
     Dosage: EVERY 3 WEEKS
     Route: 041
     Dates: start: 20100608, end: 20100608
  2. BLINDED THERAPY [Suspect]
     Indication: PROSTATE CANCER
     Route: 048
     Dates: start: 20100608
  3. PREDNISONE [Suspect]
     Indication: PROSTATE CANCER
     Route: 048
     Dates: start: 20100608
  4. DEXAMETHASONE [Suspect]
     Indication: PREMEDICATION
     Dosage: 8 MG AT 12 HOURS, 3 HOURS, AND 1 HOURS PRIOR TO DOCETAXEL INFUSION AS PRE-MEDICATION
     Route: 065
     Dates: start: 20100608, end: 20100608
  5. ESOMEPRAZOLE MAGNESIUM [Concomitant]
     Dates: start: 20060101
  6. CENTRUM [Concomitant]
     Dates: start: 20090728
  7. MULTI-VITAMINS [Concomitant]
     Dates: start: 20090728

REACTIONS (5)
  - CEREBROVASCULAR ACCIDENT [None]
  - DIFFUSE VASCULITIS [None]
  - HAEMATURIA [None]
  - PROTEINURIA [None]
  - RESPIRATORY FAILURE [None]
